FAERS Safety Report 9812938 (Version 2)
Quarter: 2014Q2

REPORT INFORMATION
  Report Type: Spontaneous
  Country: GB (occurrence: GB)
  Receive Date: 20140113
  Receipt Date: 20140606
  Transmission Date: 20141212
  Serious: Yes (Other)
  Sender: FDA-Public Use
  Company Number: GB-MYLANLABS-2014S1000115

PATIENT
  Age: 80 None
  Sex: Male

DRUGS (4)
  1. PIOGLITAZONE [Suspect]
     Indication: DIABETES MELLITUS
     Dates: start: 201308, end: 201311
  2. PIOGLITAZONE [Suspect]
     Indication: DIABETES MELLITUS
     Dates: end: 201211
  3. PIOGLITAZONE [Suspect]
     Indication: DIABETES MELLITUS
     Dates: start: 201302
  4. PIOGLITAZONE [Suspect]
     Indication: DIABETES MELLITUS
     Dates: start: 201301

REACTIONS (13)
  - Hallucination, auditory [Unknown]
  - Disturbance in attention [Unknown]
  - Confusional state [Unknown]
  - Malaise [Unknown]
  - Prescribed overdose [Unknown]
  - General physical health deterioration [Unknown]
  - Mobility decreased [Unknown]
  - Campylobacter gastroenteritis [Unknown]
  - Orthostatic hypotension [Unknown]
  - Sleep talking [Unknown]
  - Apathy [Unknown]
  - Off label use [Unknown]
  - Fall [Unknown]
